FAERS Safety Report 8612890-7 (Version None)
Quarter: 2012Q3

REPORT INFORMATION
  Report Type: 
  Country: None (occurrence: None)
  Receive Date: 20120822
  Receipt Date: 20110822
  Transmission Date: 20120928
  Serious: No
  Sender: FDA-Public Use
  Company Number: US-ALLERGAN-1111258US

PATIENT
  Age: 90 Year
  Sex: Female

DRUGS (1)
  1. SANCTURA XR [Suspect]
     Indication: BLADDER DISORDER
     Dosage: 0 MG, QD
     Route: 048
     Dates: start: 20110819

REACTIONS (1)
  - DRY MOUTH [None]
